FAERS Safety Report 6068392-8 (Version None)
Quarter: 2009Q1

REPORT INFORMATION
  Report Type: 
  Country: None (occurrence: None)
  Receive Date: 20090203
  Receipt Date: 20090129
  Transmission Date: 20090719
  Serious: Yes (Death, Life-Threatening)
  Sender: FDA-Public Use
  Company Number: 2008SP006164

PATIENT
  Age: 46 Year
  Sex: Male
  Weight: 55 kg

DRUGS (23)
  1. TEMODAL [Suspect]
     Indication: GLIOBLASTOMA MULTIFORME
     Dosage: 150 MG/M2;QD;PO; 200 MG/M2;QD;PO
     Route: 048
     Dates: start: 20070111, end: 20070115
  2. TEMODAL [Suspect]
     Indication: NEOPLASM RECURRENCE
     Dosage: 150 MG/M2;QD;PO; 200 MG/M2;QD;PO
     Route: 048
     Dates: start: 20070111, end: 20070115
  3. TEMODAL [Suspect]
     Indication: GLIOBLASTOMA MULTIFORME
     Dosage: 150 MG/M2;QD;PO; 200 MG/M2;QD;PO
     Route: 048
     Dates: start: 20070308, end: 20070312
  4. TEMODAL [Suspect]
     Indication: NEOPLASM RECURRENCE
     Dosage: 150 MG/M2;QD;PO; 200 MG/M2;QD;PO
     Route: 048
     Dates: start: 20070308, end: 20070312
  5. TEMODAL [Suspect]
     Indication: GLIOBLASTOMA MULTIFORME
     Dosage: 150 MG/M2;QD;PO; 200 MG/M2;QD;PO
     Route: 048
     Dates: start: 20070405, end: 20070409
  6. TEMODAL [Suspect]
     Indication: NEOPLASM RECURRENCE
     Dosage: 150 MG/M2;QD;PO; 200 MG/M2;QD;PO
     Route: 048
     Dates: start: 20070405, end: 20070409
  7. TEMODAL [Suspect]
     Indication: GLIOBLASTOMA MULTIFORME
     Dosage: 150 MG/M2;QD;PO; 200 MG/M2;QD;PO
     Route: 048
     Dates: start: 20070503, end: 20070507
  8. TEMODAL [Suspect]
     Indication: NEOPLASM RECURRENCE
     Dosage: 150 MG/M2;QD;PO; 200 MG/M2;QD;PO
     Route: 048
     Dates: start: 20070503, end: 20070507
  9. TEMODAL [Suspect]
     Indication: GLIOBLASTOMA MULTIFORME
     Dosage: 150 MG/M2;QD;PO; 200 MG/M2;QD;PO
     Route: 048
     Dates: start: 20070531, end: 20070604
  10. TEMODAL [Suspect]
     Indication: NEOPLASM RECURRENCE
     Dosage: 150 MG/M2;QD;PO; 200 MG/M2;QD;PO
     Route: 048
     Dates: start: 20070531, end: 20070604
  11. TEMODAL [Suspect]
     Indication: GLIOBLASTOMA MULTIFORME
     Dosage: 150 MG/M2;QD;PO; 200 MG/M2;QD;PO
     Route: 048
     Dates: start: 20070726, end: 20070730
  12. TEMODAL [Suspect]
     Indication: NEOPLASM RECURRENCE
     Dosage: 150 MG/M2;QD;PO; 200 MG/M2;QD;PO
     Route: 048
     Dates: start: 20070726, end: 20070730
  13. TEMODAL [Suspect]
     Indication: GLIOBLASTOMA MULTIFORME
     Dosage: 150 MG/M2;QD;PO; 200 MG/M2;QD;PO
     Route: 048
     Dates: start: 20070913, end: 20070917
  14. TEMODAL [Suspect]
     Indication: NEOPLASM RECURRENCE
     Dosage: 150 MG/M2;QD;PO; 200 MG/M2;QD;PO
     Route: 048
     Dates: start: 20070913, end: 20070917
  15. TEMODAL [Suspect]
     Indication: GLIOBLASTOMA MULTIFORME
     Dosage: 150 MG/M2;QD;PO; 200 MG/M2;QD;PO
     Route: 048
     Dates: start: 20080208, end: 20080212
  16. TEMODAL [Suspect]
     Indication: NEOPLASM RECURRENCE
     Dosage: 150 MG/M2;QD;PO; 200 MG/M2;QD;PO
     Route: 048
     Dates: start: 20080208, end: 20080212
  17. DEPAKENE [Concomitant]
  18. MAGMITT [Concomitant]
  19. DECADRON [Concomitant]
  20. MYSLEE [Concomitant]
  21. AVISHOT [Concomitant]
  22. TAKEPRON [Concomitant]
  23. RIVOTRIL [Concomitant]

REACTIONS (4)
  - MULTI-ORGAN FAILURE [None]
  - NEOPLASM PROGRESSION [None]
  - NEOPLASM RECURRENCE [None]
  - SEPSIS [None]
